FAERS Safety Report 7780743-2 (Version None)
Quarter: 2011Q3

REPORT INFORMATION
  Report Type: 
  Country: None (occurrence: None)
  Receive Date: 20110927
  Receipt Date: 20110706
  Transmission Date: 20111222
  Serious: No
  Sender: FDA-Public Use
  Company Number: US-BRISTOL-MYERS SQUIBB COMPANY-15870363

PATIENT
  Age: 64 Year
  Sex: Female

DRUGS (2)
  1. AVAPRO [Suspect]
     Indication: HYPERTENSION
     Dosage: FOR THE PAST 12 YEARS
     Route: 048
     Dates: start: 20090801
  2. HYDROCHLOROTHIAZIDE [Concomitant]

REACTIONS (2)
  - NASOPHARYNGITIS [None]
  - SINUSITIS [None]
